FAERS Safety Report 12716373 (Version 1)
Quarter: 2016Q3

REPORT INFORMATION
  Report Type: Spontaneous
  Country: US (occurrence: US)
  Receive Date: 20160906
  Receipt Date: 20160906
  Transmission Date: 20161109
  Serious: No
  Sender: FDA-Public Use
  Company Number: US-PFIZER INC-2016414478

PATIENT
  Age: 77 Year
  Sex: Female
  Weight: 87 kg

DRUGS (5)
  1. CARVEDILOL. [Concomitant]
     Active Substance: CARVEDILOL
     Dosage: 25 MG, 1X/DAY
     Route: 048
     Dates: start: 201405
  2. VIIBRYD [Concomitant]
     Active Substance: VILAZODONE HYDROCHLORIDE
     Dosage: 40 MG, 1X/DAY
     Route: 048
     Dates: start: 201405
  3. FUROSEMIDE. [Concomitant]
     Active Substance: FUROSEMIDE
     Dosage: 40 MG, ALTERNATE DAY
     Route: 048
     Dates: start: 201405
  4. LISINOPRIL. [Concomitant]
     Active Substance: LISINOPRIL
     Dosage: 20 MG, 1X/DAY
     Route: 048
     Dates: start: 201405
  5. LYRICA [Suspect]
     Active Substance: PREGABALIN
     Indication: NEUROPATHY PERIPHERAL
     Dosage: 50 MG, 2X/DAY, ONE IN THE MORNING AND ONE IN THE EVENING, BY MOUTH WITH FOOD
     Route: 048
     Dates: start: 20160722

REACTIONS (4)
  - Drug ineffective [Recovering/Resolving]
  - Feeling abnormal [Not Recovered/Not Resolved]
  - Gait disturbance [Unknown]
  - Insomnia [Unknown]

NARRATIVE: CASE EVENT DATE: 201607
